FAERS Safety Report 9475625 (Version 1)
Quarter: 2013Q3

REPORT INFORMATION
  Report Type: Spontaneous
  Country: US (occurrence: US)
  Receive Date: 20130826
  Receipt Date: 20130826
  Transmission Date: 20140515
  Serious: Yes (Other)
  Sender: FDA-Public Use
  Company Number: PHEH2013US017765

PATIENT
  Age: 72 Year
  Sex: Male

DRUGS (5)
  1. EXELON PATCH [Suspect]
     Indication: DEMENTIA
     Dosage: 4.6 MG, DAILY
     Route: 062
     Dates: start: 20130722, end: 20130729
  2. XANAX [Suspect]
     Dosage: UNK UKN, UNK
  3. XANAX [Suspect]
     Dosage: 30 XANAX IN 5 DAYS
  4. NAMENDA [Concomitant]
     Indication: DEMENTIA
     Dosage: UNK UKN, UNK
  5. LEVODOPA [Concomitant]
     Dosage: UNK UKN, UNK

REACTIONS (6)
  - Serotonin syndrome [Recovering/Resolving]
  - Drug abuse [Recovering/Resolving]
  - Drug withdrawal syndrome [Recovering/Resolving]
  - General physical health deterioration [Recovering/Resolving]
  - Malaise [Recovering/Resolving]
  - Dehydration [Recovering/Resolving]
